FAERS Safety Report 4276136-5 (Version None)
Quarter: 2004Q1

REPORT INFORMATION
  Report Type: 
  Country: None (occurrence: None)
  Receive Date: 20040121
  Receipt Date: 20031030
  Transmission Date: 20041129
  Serious: No
  Sender: FDA-Public Use
  Company Number: US-GLAXOSMITHKLINE-A0432269A

PATIENT
  Age: 56 Year
  Sex: Female

DRUGS (8)
  1. VALTREX [Suspect]
     Dosage: 1000MG TWICE PER DAY
     Route: 048
     Dates: start: 20031001, end: 20031001
  2. LEVOTHYROXINE SODIUM [Concomitant]
  3. PRAVACHOL [Concomitant]
  4. ASPIRIN [Concomitant]
  5. CENTRUM [Concomitant]
  6. LUTEIN [Concomitant]
  7. PROGESTERONE [Concomitant]
  8. ESTRADIOL [Concomitant]

REACTIONS (1)
  - DRUG INEFFECTIVE [None]
